FAERS Safety Report 17501901 (Version 1)
Quarter: 2020Q1

REPORT INFORMATION
  Report Type: Spontaneous
  Country: US (occurrence: US)
  Receive Date: 20200305
  Receipt Date: 20200305
  Transmission Date: 20200409
  Serious: Yes (Hospitalization)
  Sender: FDA-Public Use
  Company Number: US-MYLANLABS-2020M1024063

PATIENT
  Age: 54 Year
  Sex: Male

DRUGS (2)
  1. MITOMYCIN. [Suspect]
     Active Substance: MITOMYCIN
     Indication: ADENOCARCINOMA OF APPENDIX
     Dosage: UNK
     Route: 065
  2. DIMETHYL SULFOXIDE. [Suspect]
     Active Substance: DIMETHYL SULFOXIDE
     Indication: SCROTAL ULCER
     Dosage: 8 HOURS, 7 DAYS
     Route: 061

REACTIONS (4)
  - Epidermal necrosis [Unknown]
  - Administration site extravasation [Unknown]
  - Scrotal ulcer [Unknown]
  - Off label use [Unknown]
